FAERS Safety Report 7320832-X (Version None)
Quarter: 2011Q1

REPORT INFORMATION
  Report Type: 
  Country: None (occurrence: None)
  Receive Date: 20110228
  Receipt Date: 20110218
  Transmission Date: 20110831
  Serious: Yes (Hospitalization)
  Sender: FDA-Public Use
  Company Number: FR-JNJFOC-20110206372

PATIENT
  Sex: Male

DRUGS (3)
  1. UNSPECIFIED ANTIDEPRESSANTS [Concomitant]
     Route: 065
  2. RISPERDAL CONSTA [Suspect]
     Indication: SCHIZOPHRENIA, PARANOID TYPE
     Route: 030
  3. RISPERDAL CONSTA [Suspect]
     Route: 030

REACTIONS (3)
  - PSYCHIATRIC DECOMPENSATION [None]
  - DRUG INEFFECTIVE [None]
  - OVERDOSE [None]
